FAERS Safety Report 5893121-8 (Version None)
Quarter: 2008Q3

REPORT INFORMATION
  Report Type: 
  Country: None (occurrence: None)
  Receive Date: 20080923
  Receipt Date: 20070811
  Transmission Date: 20090109
  Serious: No
  Sender: FDA-Public Use
  Company Number: US-ASTRAZENECA-2007UW19547

PATIENT
  Sex: Female

DRUGS (6)
  1. SEROQUEL [Suspect]
     Dosage: 50 MG AM; 75 MG PM
     Route: 048
  2. NAMENDA [Concomitant]
  3. REMERON [Concomitant]
  4. TRAZODONE HCL [Concomitant]
  5. HALDOL [Concomitant]
  6. ARICEPT [Concomitant]

REACTIONS (2)
  - SOMNOLENCE [None]
  - VISION BLURRED [None]
